FAERS Safety Report 25102066 (Version 1)
Quarter: 2025Q1

REPORT INFORMATION
  Report Type: Spontaneous
  Country: CZ (occurrence: CZ)
  Receive Date: 20250320
  Receipt Date: 20250320
  Transmission Date: 20250409
  Serious: Yes (Other)
  Sender: EISAI
  Company Number: None

PATIENT
  Age: 68 Year
  Sex: Female
  Weight: 54 kg

DRUGS (5)
  1. LENVIMA [Suspect]
     Active Substance: LENVATINIB
     Indication: Endometrial cancer
     Dates: start: 20240220, end: 20240319
  2. LENVIMA [Suspect]
     Active Substance: LENVATINIB
     Dates: start: 20240424, end: 20241203
  3. LENVIMA [Suspect]
     Active Substance: LENVATINIB
     Dates: start: 202412, end: 20241207
  4. LENVIMA [Suspect]
     Active Substance: LENVATINIB
     Dates: start: 202412, end: 20241220
  5. KEYTRUDA [Suspect]
     Active Substance: PEMBROLIZUMAB
     Indication: Endometrial cancer
     Dates: start: 20240220, end: 20241223

REACTIONS (1)
  - Ischaemic stroke [Unknown]

NARRATIVE: CASE EVENT DATE: 20250101
